FAERS Safety Report 13510960 (Version 3)
Quarter: 2017Q4

REPORT INFORMATION
  Report Type: Report from Study
  Country: US (occurrence: US)
  Receive Date: 20170503
  Receipt Date: 20171102
  Transmission Date: 20180320
  Serious: No
  Sender: FDA-Public Use
  Company Number: US-AMGEN-USASL2017053718

PATIENT
  Age: 69 Year
  Sex: Male

DRUGS (1)
  1. IMLYGIC [Suspect]
     Active Substance: TALIMOGENE LAHERPAREPVEC
     Indication: MALIGNANT MELANOMA
     Dosage: UNK
     Route: 065
     Dates: end: 20170110

REACTIONS (3)
  - Unevaluable event [Unknown]
  - Positron emission tomogram [Unknown]
  - Scan brain [Unknown]

NARRATIVE: CASE EVENT DATE: 2017
